FAERS Safety Report 7675189-1 (Version None)
Quarter: 2011Q3

REPORT INFORMATION
  Report Type: 
  Country: None (occurrence: None)
  Receive Date: 20110810
  Receipt Date: 20110810
  Transmission Date: 20111222
  Serious: Yes (Death, Hospitalization)
  Sender: FDA-Public Use
  Company Number: None

PATIENT
  Age: 78 Year
  Sex: Male
  Weight: 87.5 kg

DRUGS (2)
  1. RITUXAN [Concomitant]
     Indication: CHRONIC LYMPHOCYTIC LEUKAEMIA
     Dosage: 800 MG
     Route: 041
  2. BENDAMUSTINE [Suspect]
     Indication: CHRONIC LYMPHOCYTIC LEUKAEMIA
     Dosage: 189 MG
     Route: 041

REACTIONS (13)
  - FATIGUE [None]
  - CHEST PAIN [None]
  - BLOOD LACTATE DEHYDROGENASE INCREASED [None]
  - TUMOUR LYSIS SYNDROME [None]
  - HYPERKALAEMIA [None]
  - DYSPNOEA [None]
  - HYPOTENSION [None]
  - BRADYCARDIA [None]
  - HYPOXIA [None]
  - ELECTROCARDIOGRAM CHANGE [None]
  - FLUID OVERLOAD [None]
  - GENERAL PHYSICAL HEALTH DETERIORATION [None]
  - HAEMODIALYSIS [None]
